FAERS Safety Report 7338458-0 (Version None)
Quarter: 2011Q1

REPORT INFORMATION
  Report Type: 
  Country: None (occurrence: None)
  Receive Date: 20110308
  Receipt Date: 20110223
  Transmission Date: 20110831
  Serious: Yes (Hospitalization)
  Sender: FDA-Public Use
  Company Number: FR-ELI_LILLY_AND_COMPANY-FR201103001316

PATIENT
  Sex: Female

DRUGS (18)
  1. SERESTA [Concomitant]
     Dosage: UNK, UNKNOWN
  2. LYRICA [Concomitant]
     Dosage: 3 D/F, DAILY (1/D)
     Route: 048
  3. PARACETAMOL [Concomitant]
     Route: 048
  4. HALDOL [Concomitant]
  5. DEPAKENE [Concomitant]
     Dosage: 2 G, DAILY (1/D)
     Route: 048
  6. NOCTAMIDE [Concomitant]
     Dosage: UNK, UNKNOWN
  7. LYRICA [Concomitant]
     Dosage: UNK, UNKNOWN
  8. SERESTA [Concomitant]
     Dosage: 150 MG, DAILY (1/D)
     Route: 048
  9. PARAPSYLLIUM [Concomitant]
     Dosage: 2 D/F, DAILY (1/D)
     Route: 048
  10. NOCTAMIDE [Concomitant]
     Dosage: 2 MG, DAILY (1/D)
     Route: 048
  11. PARKINANE [Concomitant]
     Dosage: 5 MG, DAILY (1/D)
     Route: 048
  12. LOXAPINE HCL [Concomitant]
     Dosage: UNK, UNKNOWN
  13. DITROPAN [Concomitant]
     Dosage: 15 MG, DAILY (1/D)
  14. LEVOTHYROXINE SODIUM [Concomitant]
     Route: 048
  15. PLAVIX [Concomitant]
     Dosage: 1 D/F, DAILY (1/D)
     Route: 048
  16. CYMBALTA [Suspect]
     Dosage: 30 MG, DAILY (1/D)
     Route: 048
  17. LOXAPINE HCL [Concomitant]
     Dosage: 100 MG, DAILY (1/D)
     Route: 048
     Dates: end: 20080921
  18. TERALITHE [Concomitant]
     Dosage: 1 D/F, DAILY (1/D)
     Route: 048

REACTIONS (1)
  - INTESTINAL OBSTRUCTION [None]
